FAERS Safety Report 7328841-1 (Version None)
Quarter: 2011Q1

REPORT INFORMATION
  Report Type: 
  Country: None (occurrence: None)
  Receive Date: 20110225
  Receipt Date: 20110225
  Transmission Date: 20110831
  Serious: Yes (Other)
  Sender: FDA-Public Use
  Company Number: None

PATIENT
  Age: 83 Year
  Sex: Male

DRUGS (1)
  1. CIPROFLOXACIN [Suspect]
     Indication: TRANSURETHRAL PROSTATECTOMY
     Dates: start: 20110114, end: 20110114

REACTIONS (2)
  - URTICARIA [None]
  - PRURITUS [None]
